FAERS Safety Report 8593506-5 (Version None)
Quarter: 2012Q3

REPORT INFORMATION
  Report Type: 
  Country: None (occurrence: None)
  Receive Date: 20120814
  Receipt Date: 20120730
  Transmission Date: 20120928
  Serious: Yes (Other)
  Sender: FDA-Public Use
  Company Number: US-ARROW-2012-13675

PATIENT
  Age: 65 Year
  Sex: Male

DRUGS (4)
  1. VITAMIN C                          /00008001/ [Suspect]
     Indication: SMALL CELL LUNG CANCER STAGE UNSPECIFIED
     Dosage: BIWEEKLY
     Route: 042
  2. LEVETIRACETAM [Suspect]
     Indication: PRODUCT USED FOR UNKNOWN INDICATION
     Dosage: MAXIMAL DOSING
  3. VALPROATE SODIUM [Suspect]
     Indication: PRODUCT USED FOR UNKNOWN INDICATION
     Dosage: MAXIMAL DOSING
     Route: 065
  4. MISTLETOE [Suspect]
     Indication: SMALL CELL LUNG CANCER STAGE UNSPECIFIED
     Dosage: EVERY 3 DAYS
     Route: 030

REACTIONS (4)
  - FATIGUE [None]
  - CONVULSION [None]
  - CONDITION AGGRAVATED [None]
  - CONFUSIONAL STATE [None]
